FAERS Safety Report 4687329-7 (Version None)
Quarter: 2005Q2

REPORT INFORMATION
  Report Type: 
  Country: None (occurrence: None)
  Receive Date: 20050609
  Receipt Date: 20050603
  Transmission Date: 20051028
  Serious: Yes (Death)
  Sender: FDA-Public Use
  Company Number: 05-06-0983

PATIENT
  Age: 67 Year
  Sex: Male

DRUGS (1)
  1. CLOZAPINE [Suspect]
     Indication: SCHIZOPHRENIA, PARANOID TYPE
     Dosage: 500-750 MG QD ORAL
     Route: 048
     Dates: start: 20000201, end: 20050501

REACTIONS (1)
  - CARDIAC ARREST [None]
